FAERS Safety Report 7866708-0 (Version None)
Quarter: 2011Q4

REPORT INFORMATION
  Report Type: 
  Country: None (occurrence: None)
  Receive Date: 20111028
  Receipt Date: 20110804
  Transmission Date: 20120403
  Serious: No
  Sender: FDA-Public Use
  Company Number: US-GLAXOSMITHKLINE-A0939681A

PATIENT
  Age: 56 Year
  Sex: Male

DRUGS (6)
  1. AMLODIPINE BESYLATE [Concomitant]
  2. ADVAIR DISKUS 100/50 [Suspect]
     Indication: DYSPNOEA
     Dosage: 1PUFF TWICE PER DAY
     Route: 055
     Dates: start: 20110101
  3. NEXIUM [Concomitant]
  4. DIOVAN [Concomitant]
  5. HYDROCHLOROTHIAZIDE [Concomitant]
  6. LEVOTHYROXINE SODIUM [Concomitant]

REACTIONS (4)
  - STARING [None]
  - ANGER [None]
  - MOOD SWINGS [None]
  - DISSOCIATION [None]
